FAERS Safety Report 13524196 (Version 2)
Quarter: 2017Q2

REPORT INFORMATION
  Report Type: Report from Study
  Country: US (occurrence: DO)
  Receive Date: 20170508
  Receipt Date: 20170522
  Transmission Date: 20170830
  Serious: Yes (Hospitalization, Other)
  Sender: FDA-Public Use
  Company Number: US-SUNOVION-2017SUN001948

PATIENT
  Age: 70 Year
  Sex: Male
  Weight: 55.78 kg

DRUGS (1)
  1. INDACATEROL AND GLYCOPYRROLATE [Suspect]
     Active Substance: GLYCOPYRROLATE\INDACATEROL MALEATE
     Indication: ASTHMA
     Dosage: 1 DF (GLYCOPYRRONIUM BROMIDE 0.05 MG, INDACATEROL 0.11 MG), (ONE EVERY 24 HOURS)
     Route: 065

REACTIONS (8)
  - Sensitivity to weather change [Unknown]
  - Pneumonia [Recovered/Resolved]
  - Asphyxia [Unknown]
  - Lung disorder [Unknown]
  - Dyspnoea [Recovering/Resolving]
  - Memory impairment [Unknown]
  - Product use in unapproved indication [Unknown]
  - Speech disorder [Unknown]
